FAERS Safety Report 7157910-4 (Version None)
Quarter: 2010Q4

REPORT INFORMATION
  Report Type: 
  Country: None (occurrence: None)
  Receive Date: 20101214
  Receipt Date: 20101208
  Transmission Date: 20110411
  Serious: Yes (Hospitalization, Other)
  Sender: FDA-Public Use
  Company Number: US-MERCK-1005USA00487

PATIENT
  Age: 64 Year
  Sex: Female

DRUGS (3)
  1. FOSAMAX [Suspect]
     Indication: OSTEOPOROSIS
     Route: 048
     Dates: start: 20000626, end: 20020101
  2. FOSAMAX [Suspect]
     Route: 048
     Dates: start: 20020923, end: 20080101
  3. ALENDRONATE SODIUM [Suspect]
     Route: 048
     Dates: start: 20070913, end: 20090101

REACTIONS (8)
  - ANXIETY [None]
  - DEPRESSION [None]
  - FEMUR FRACTURE [None]
  - HERPES ZOSTER [None]
  - LOW TURNOVER OSTEOPATHY [None]
  - MIGRAINE [None]
  - RADIUS FRACTURE [None]
  - STRESS [None]
